FAERS Safety Report 23184412 (Version 1)
Quarter: 2023Q4

REPORT INFORMATION
  Report Type: Spontaneous
  Country: CN (occurrence: CN)
  Receive Date: 20231115
  Receipt Date: 20231115
  Transmission Date: 20240109
  Serious: Yes (Life-Threatening)
  Sender: FDA-Public Use
  Company Number: US-Coherus Biosciences, Inc.-2023-COH-CN000497

PATIENT

DRUGS (4)
  1. TORIPALIMAB [Suspect]
     Active Substance: TORIPALIMAB
     Indication: Lung neoplasm malignant
     Dosage: 240 MG
     Route: 041
     Dates: start: 20230920
  2. ETOPOSIDE [Suspect]
     Active Substance: ETOPOSIDE
     Indication: Lung neoplasm malignant
     Dosage: 160 MG, QD
     Route: 041
     Dates: start: 20230919, end: 20230921
  3. ETOPOSIDE [Suspect]
     Active Substance: ETOPOSIDE
     Dosage: 160 MG
     Route: 041
     Dates: start: 20231010, end: 20231012
  4. CARBOPLATIN [Suspect]
     Active Substance: CARBOPLATIN
     Indication: Lung neoplasm malignant
     Dosage: 450 MG
     Route: 041
     Dates: start: 20230919

REACTIONS (1)
  - Myelosuppression [Recovering/Resolving]

NARRATIVE: CASE EVENT DATE: 20231005
